FAERS Safety Report 9239111 (Version 4)
Quarter: 2013Q2

REPORT INFORMATION
  Report Type: Report from Study
  Country: US (occurrence: US)
  Receive Date: 20130418
  Receipt Date: 20130612
  Transmission Date: 20140414
  Serious: Yes (Hospitalization)
  Sender: FDA-Public Use
  Company Number: US-ROCHE-1165109

PATIENT
  Sex: Female

DRUGS (6)
  1. PEGASYS [Suspect]
     Indication: CHRONIC HEPATITIS C
     Dosage: 2007-2008
     Route: 065
  2. PEGASYS [Suspect]
     Route: 058
     Dates: start: 20121204
  3. INCIVEK [Suspect]
     Indication: CHRONIC HEPATITIS C
     Route: 050
     Dates: start: 20121204, end: 20130226
  4. RIBASPHERE [Suspect]
     Indication: CHRONIC HEPATITIS C
     Dosage: 2007-2008
     Route: 065
  5. RIBASPHERE [Suspect]
     Dosage: DIVIDED DOSE
     Route: 048
     Dates: start: 20121204
  6. RIBASPHERE [Suspect]
     Route: 048

REACTIONS (14)
  - Painful respiration [Unknown]
  - Fatigue [Unknown]
  - Depression [Unknown]
  - Fatigue [Not Recovered/Not Resolved]
  - Decreased appetite [Unknown]
  - Back pain [Not Recovered/Not Resolved]
  - Anxiety [Unknown]
  - Dyspnoea [Not Recovered/Not Resolved]
  - Platelet count decreased [Not Recovered/Not Resolved]
  - White blood cell count decreased [Not Recovered/Not Resolved]
  - Haemoglobin decreased [Unknown]
  - Benign lung neoplasm [Unknown]
  - Anaemia [Unknown]
  - Weight decreased [Unknown]
